FAERS Safety Report 6572899-4 (Version None)
Quarter: 2010Q1

REPORT INFORMATION
  Report Type: 
  Country: None (occurrence: None)
  Receive Date: 20100207
  Receipt Date: 20100202
  Transmission Date: 20100710
  Serious: Yes (Life-Threatening, Hospitalization)
  Sender: FDA-Public Use
  Company Number: FR-MERCK-1002FRA00005

PATIENT
  Age: 57 Year
  Sex: Female

DRUGS (11)
  1. PRIMAXIN [Suspect]
     Indication: PNEUMOPERITONEUM
     Route: 042
     Dates: start: 20091124, end: 20091209
  2. PRIMAXIN [Suspect]
     Indication: LEUKOCYTOSIS
     Route: 042
     Dates: start: 20091124, end: 20091209
  3. ESOMEPRAZOLE MAGNESIUM [Suspect]
     Indication: PERFORATED ULCER
     Route: 042
     Dates: start: 20091125, end: 20091209
  4. PANTOPRAZOLE SODIUM [Suspect]
     Route: 042
     Dates: start: 20091209, end: 20091210
  5. FLUCONAZOLE [Concomitant]
     Indication: PNEUMOPERITONEUM
     Route: 042
     Dates: start: 20091121, end: 20091205
  6. TRAMADOL HYDROCHLORIDE [Concomitant]
     Route: 042
     Dates: start: 20091204
  7. MORPHINE [Concomitant]
     Route: 042
     Dates: start: 20091110
  8. ACETAMINOPHEN [Concomitant]
     Route: 042
     Dates: start: 20091110
  9. NOREPINEPHRINE [Concomitant]
     Route: 042
     Dates: start: 20091110
  10. INSULIN [Concomitant]
     Route: 042
     Dates: start: 20091110
  11. ALBUMIN HUMAN [Concomitant]
     Route: 042
     Dates: start: 20091110

REACTIONS (5)
  - HAEMATURIA [None]
  - HAEMORRHAGIC ASCITES [None]
  - MOUTH HAEMORRHAGE [None]
  - PURPURA [None]
  - THROMBOCYTOPENIA [None]
